FAERS Safety Report 9307894 (Version 3)
Quarter: 2018Q4

REPORT INFORMATION
  Report Type: Spontaneous
  Country: JP (occurrence: JP)
  Receive Date: 20130524
  Receipt Date: 20181102
  Transmission Date: 20190205
  Serious: Yes (Hospitalization)
  Sender: FDA-Public Use
  Company Number: PHHY2013JP051821

PATIENT
  Age: 70 Year
  Sex: Female

DRUGS (7)
  1. ZOLEDRONIC ACID [Suspect]
     Active Substance: ZOLEDRONIC ACID
     Indication: BREAST CANCER
  2. GOSERELIN ACETATE [Concomitant]
     Active Substance: GOSERELIN ACETATE
     Dosage: UNK
     Route: 065
  3. ZOLEDRONIC ACID [Suspect]
     Active Substance: ZOLEDRONIC ACID
     Indication: BREAST CANCER STAGE IV
     Route: 041
  4. FEMARA [Suspect]
     Active Substance: LETROZOLE
     Dosage: UNK UKN, UNK
     Route: 065
  5. TOREMIFENE CITRATE [Concomitant]
     Active Substance: TOREMIFENE CITRATE
     Dosage: UNK
     Route: 065
  6. CYCLOPHOSPHAMIDE MONOHYDRATE [Concomitant]
     Active Substance: CYCLOPHOSPHAMIDE
     Dosage: UNK
     Route: 065
  7. DOXIFLURIDINE [Concomitant]
     Active Substance: DOXIFLURIDINE
     Dosage: UNK
     Route: 065

REACTIONS (9)
  - Acidosis hyperchloraemic [Recovering/Resolving]
  - Renal glycosuria [Unknown]
  - Thirst [Unknown]
  - Hypokalaemia [Recovering/Resolving]
  - Decreased appetite [Recovered/Resolved]
  - Fanconi syndrome [Recovering/Resolving]
  - Aminoaciduria [Unknown]
  - Polyuria [Unknown]
  - Hypouricaemia [Unknown]

NARRATIVE: CASE EVENT DATE: 201102
